FAERS Safety Report 8093775-4 (Version None)
Quarter: 2012Q1

REPORT INFORMATION
  Report Type: 
  Country: None (occurrence: None)
  Receive Date: 20120131
  Receipt Date: 20120123
  Transmission Date: 20120608
  Serious: Yes (Death, Hospitalization)
  Sender: FDA-Public Use
  Company Number: US-MYLANLABS-2011S1013888

PATIENT
  Age: 59 Year
  Sex: Male

DRUGS (6)
  1. ULTRAM [Concomitant]
  2. LIDOCAINE [Concomitant]
     Dosage: TO BOTH FEET AND RIGHT SIDE
     Route: 062
     Dates: start: 20090429
  3. NORCO [Concomitant]
  4. ATIVAN [Concomitant]
     Dates: start: 20090429
  5. FENTANYL-100 [Suspect]
     Route: 062
     Dates: start: 20090401, end: 20090502
  6. OXYCONTIN [Concomitant]
     Dates: start: 20090429

REACTIONS (6)
  - DYSPNOEA [None]
  - UNRESPONSIVE TO STIMULI [None]
  - ABDOMINAL PAIN LOWER [None]
  - RESPIRATORY DISTRESS [None]
  - SOMNOLENCE [None]
  - EYE DISORDER [None]
